FAERS Safety Report 4651068-9 (Version None)
Quarter: 2005Q2

REPORT INFORMATION
  Report Type: 
  Country: None (occurrence: None)
  Receive Date: 20050503
  Receipt Date: 20041021
  Transmission Date: 20051028
  Serious: Yes (Hospitalization)
  Sender: FDA-Public Use
  Company Number: DE-ROCHE-383894

PATIENT
  Age: 46 Year
  Sex: Male
  Weight: 85.3 kg

DRUGS (66)
  1. MYCOPHENOLATE MOFETIL [Suspect]
     Route: 048
     Dates: start: 20040927, end: 20040927
  2. MYCOPHENOLATE MOFETIL [Suspect]
     Route: 048
     Dates: start: 20040928, end: 20040928
  3. MYCOPHENOLATE MOFETIL [Suspect]
     Route: 048
     Dates: start: 20040929
  4. MYCOPHENOLATE MOFETIL [Suspect]
     Route: 048
     Dates: start: 20041002, end: 20041002
  5. MYCOPHENOLATE MOFETIL [Suspect]
     Route: 048
     Dates: start: 20041003
  6. MYCOPHENOLATE MOFETIL [Suspect]
     Route: 048
     Dates: start: 20041005
  7. MYCOPHENOLATE MOFETIL [Suspect]
     Route: 048
     Dates: start: 20041007, end: 20041008
  8. MYCOPHENOLATE MOFETIL [Suspect]
     Route: 048
     Dates: start: 20041009
  9. DACLIZUMAB [Suspect]
     Route: 042
     Dates: start: 20041011, end: 20041011
  10. DACLIZUMAB [Suspect]
     Route: 042
     Dates: start: 20040927, end: 20040927
  11. DACLIZUMAB [Suspect]
     Route: 042
     Dates: start: 20041025, end: 20041025
  12. DACLIZUMAB [Suspect]
     Route: 042
     Dates: start: 20041108, end: 20041108
  13. DACLIZUMAB [Suspect]
     Route: 042
     Dates: start: 20041123, end: 20041123
  14. SIROLIMUS [Suspect]
     Route: 048
     Dates: start: 20040927, end: 20040927
  15. SIROLIMUS [Suspect]
     Route: 048
     Dates: start: 20040928, end: 20040929
  16. SIROLIMUS [Suspect]
     Route: 048
     Dates: start: 20040930, end: 20041026
  17. SIROLIMUS [Suspect]
     Route: 048
     Dates: start: 20041027, end: 20041112
  18. SIROLIMUS [Suspect]
     Route: 048
     Dates: start: 20041113
  19. SIROLIMUS [Suspect]
     Route: 048
     Dates: start: 20041224, end: 20050105
  20. SIROLIMUS [Suspect]
     Route: 048
     Dates: start: 20050106
  21. SIROLIMUS [Suspect]
     Route: 048
     Dates: start: 20050127
  22. SIROLIMUS [Suspect]
     Route: 048
     Dates: start: 20050216
  23. SIROLIMUS [Suspect]
     Route: 048
     Dates: start: 20050218
  24. SIROLIMUS [Suspect]
     Route: 048
     Dates: start: 20050324
  25. PREDNISOLONE [Suspect]
     Route: 048
     Dates: start: 20041008
  26. PREDNISOLONE [Suspect]
     Route: 048
     Dates: start: 20040927, end: 20040927
  27. PREDNISOLONE [Suspect]
     Route: 048
     Dates: start: 20040928
  28. PREDNISOLONE [Suspect]
     Route: 048
     Dates: start: 20040930, end: 20041002
  29. PREDNISOLONE [Suspect]
     Route: 048
     Dates: start: 20041003
  30. PREDNISOLONE [Suspect]
     Route: 048
     Dates: start: 20041006, end: 20041006
  31. PREDNISOLONE [Suspect]
     Route: 048
     Dates: start: 20041007, end: 20041007
  32. PREDNISOLONE [Suspect]
     Route: 048
     Dates: start: 20041015, end: 20041016
  33. PREDNISOLONE [Suspect]
     Route: 048
     Dates: start: 20041017, end: 20041020
  34. PREDNISOLONE [Suspect]
     Route: 048
     Dates: start: 20041021, end: 20041102
  35. PREDNISOLONE [Suspect]
     Route: 048
     Dates: start: 20041103, end: 20041112
  36. PREDNISOLONE [Suspect]
     Route: 048
     Dates: start: 20041113, end: 20041206
  37. PREDNISOLONE [Suspect]
     Route: 048
     Dates: start: 20041207
  38. PREDNISOLONE [Suspect]
     Route: 048
     Dates: start: 20041221
  39. PREDNISOLONE [Suspect]
     Route: 048
     Dates: start: 20041222
  40. PREDNISOLONE [Suspect]
     Route: 048
     Dates: start: 20041223
  41. PREDNISOLONE [Suspect]
     Route: 048
     Dates: start: 20041226, end: 20041226
  42. PREDNISOLONE [Suspect]
     Route: 048
     Dates: start: 20041231
  43. PREDNISOLONE [Suspect]
     Route: 048
     Dates: start: 20050102
  44. PREDNISOLONE [Suspect]
     Route: 048
     Dates: start: 20050105
  45. PREDNISOLONE [Suspect]
     Route: 048
     Dates: start: 20050118
  46. PREDNISOLONE [Suspect]
     Route: 048
     Dates: start: 20050126
  47. PREDNISOLONE [Suspect]
     Route: 048
     Dates: start: 20050217, end: 20050220
  48. PREDNISOLONE [Suspect]
     Route: 048
     Dates: start: 20050224
  49. CIPROFLOXACIN [Suspect]
     Indication: DRUG USE FOR UNKNOWN INDICATION
     Dosage: STOPPED ON THE 25 FEBRUARY 2005 AND RESTARTED ON THE 30 MARCH 2005.
     Route: 065
     Dates: start: 20050119
  50. RAMIPRIL [Suspect]
     Indication: DRUG USE FOR UNKNOWN INDICATION
     Route: 065
     Dates: start: 20041003
  51. ACETYLCYSTEINE [Concomitant]
     Dates: start: 20041001, end: 20041016
  52. AMLODIPINE [Concomitant]
     Dates: start: 20040930
  53. AMPHOTERICIN B [Concomitant]
     Dates: start: 20040928
  54. CLONIDIN [Concomitant]
     Dates: start: 20041006, end: 20050118
  55. DIHYDRALAZIN [Concomitant]
     Dates: start: 20040930
  56. FUROSEMIDE [Concomitant]
     Dates: start: 20040901
  57. LEVOFLOXACIN [Concomitant]
     Dates: start: 20041001, end: 20041016
  58. LORAZEPAM [Concomitant]
     Dates: start: 20040930, end: 20040930
  59. URAPIDIL [Concomitant]
     Dates: start: 20040928
  60. AMIODARONE HCL [Concomitant]
     Dates: start: 20040930, end: 20041006
  61. ATORVASTATIN CALCIUM [Concomitant]
     Dates: start: 20041113
  62. METOPROLOL [Concomitant]
     Dates: start: 20040928
  63. CEFUROXIM [Concomitant]
     Dosage: STOPPED 2 OCT AND RESTARTED 20 DEC 04.
     Dates: start: 20040928, end: 20041229
  64. DARBEPOETIN ALFA [Concomitant]
     Dates: start: 20050323
  65. KALINOR BRAUSE [Concomitant]
     Dates: start: 20040102, end: 20050204
  66. MOXONIDINE [Concomitant]
     Dates: start: 20050118

REACTIONS (4)
  - ANGIONEUROTIC OEDEMA [None]
  - BLOOD CREATININE INCREASED [None]
  - DEHYDRATION [None]
  - LYMPHOCELE [None]
